FAERS Safety Report 7334586-4 (Version None)
Quarter: 2011Q1

REPORT INFORMATION
  Report Type: 
  Country: None (occurrence: None)
  Receive Date: 20110307
  Receipt Date: 20101026
  Transmission Date: 20110831
  Serious: No
  Sender: FDA-Public Use
  Company Number: A0888787A

PATIENT
  Age: 52 Year
  Sex: Female

DRUGS (11)
  1. INSULIN [Concomitant]
  2. NEURONTIN [Concomitant]
  3. REQUIP [Suspect]
     Indication: RESTLESS LEGS SYNDROME
     Dosage: 3MG AT NIGHT
     Route: 048
     Dates: start: 20090101
  4. OMEPRAZOLE [Concomitant]
  5. DIOVAN [Concomitant]
  6. PROZAC [Concomitant]
  7. WATER PILL [Concomitant]
  8. LOVASTATIN [Concomitant]
  9. METFORMIN [Concomitant]
  10. BUSPAR [Concomitant]
  11. AMITRIPTYLINE [Concomitant]

REACTIONS (1)
  - DRUG INEFFECTIVE [None]
